FAERS Safety Report 4476530-3 (Version None)
Quarter: 2004Q4

REPORT INFORMATION
  Report Type: 
  Country: None (occurrence: None)
  Receive Date: 20041013
  Receipt Date: 20040927
  Transmission Date: 20050328
  Serious: Yes (Other)
  Sender: FDA-Public Use
  Company Number: US_0409106202

PATIENT
  Age: 54 Year
  Sex: Male

DRUGS (2)
  1. PREMETREXED [Suspect]
     Indication: PERITONEAL MESOTHELIOMA MALIGNANT
     Dates: start: 20040101, end: 20040801
  2. CISPLATIN [Concomitant]

REACTIONS (4)
  - ASTHENIA [None]
  - DYSPNOEA [None]
  - FLUID RETENTION [None]
  - GENERAL PHYSICAL HEALTH DETERIORATION [None]
